FAERS Safety Report 20325582 (Version 6)
Quarter: 2022Q2

REPORT INFORMATION
  Report Type: Report from Study
  Country: JP (occurrence: JP)
  Receive Date: 20220112
  Receipt Date: 20220511
  Transmission Date: 20220721
  Serious: Yes (Other)
  Sender: FDA-Public Use
  Company Number: JP-ALXN-A202016702AA

PATIENT
  Age: 5 Year
  Sex: Female
  Weight: 16.8 kg

DRUGS (9)
  1. ULTOMIRIS [Suspect]
     Active Substance: RAVULIZUMAB-CWVZ
     Dosage: 600 MG, QMONTH
     Route: 042
     Dates: start: 20201224
  2. ULTOMIRIS [Suspect]
     Active Substance: RAVULIZUMAB-CWVZ
     Indication: Atypical haemolytic uraemic syndrome
     Dosage: 600 MG, Q2W
     Route: 042
     Dates: start: 20201112, end: 20201126
  3. CARVEDILOL [Concomitant]
     Active Substance: CARVEDILOL
     Indication: Cardiac failure
     Dosage: 2.8 MG, QD-BID
     Route: 048
     Dates: start: 201505
  4. DIGOXIN [Concomitant]
     Active Substance: DIGOXIN
     Indication: Cardiac failure
     Dosage: 0.065 MG, QD-BID
     Route: 048
     Dates: start: 201505
  5. ENALAPRIL MALEATE [Concomitant]
     Active Substance: ENALAPRIL MALEATE
     Indication: Cardiac failure
     Dosage: 0.9 MG, QD-BID
     Route: 048
     Dates: start: 201505
  6. SODIUM FERROUS CITRATE [Concomitant]
     Active Substance: SODIUM FERROUS CITRATE
     Indication: Cardiac failure
     Dosage: 15 MG, QD-BID
     Route: 048
     Dates: start: 201505
  7. FUROSEMIDE [Concomitant]
     Active Substance: FUROSEMIDE
     Indication: Cardiac failure
     Dosage: 10 MG, QD-BID
     Route: 048
     Dates: start: 201505
  8. LOSARTAN POTASSIUM [Concomitant]
     Active Substance: LOSARTAN POTASSIUM
     Indication: Cardiac failure
     Dosage: 7 MG, QD-BID
     Route: 048
     Dates: start: 201505
  9. WIDECILLIN                         /00249602/ [Concomitant]
     Indication: Prophylaxis
     Dosage: 180 MG, BID
     Route: 048
     Dates: start: 20210902

REACTIONS (2)
  - Infusion related reaction [Recovering/Resolving]
  - Vasculitis [Recovered/Resolved]

NARRATIVE: CASE EVENT DATE: 20201112
